FAERS Safety Report 5125600-5 (Version None)
Quarter: 2006Q4

REPORT INFORMATION
  Report Type: 
  Country: None (occurrence: None)
  Receive Date: 20061006
  Receipt Date: 20060927
  Transmission Date: 20070319
  Serious: Yes (Other)
  Sender: FDA-Public Use
  Company Number: 229927

PATIENT
  Age: 46 Year
  Sex: Male

DRUGS (9)
  1. AVASTIN [Suspect]
     Indication: LUNG ADENOCARCINOMA
     Dosage: 1440 MG, INTRAVENOUS
     Route: 042
     Dates: start: 20060413
  2. GEMZAR [Concomitant]
  3. NAVELBINE [Concomitant]
  4. DEXAMETHASONE TAB [Concomitant]
  5. ASPIRIN [Concomitant]
  6. FOLIC ACID [Concomitant]
  7. TUSSIONEX (UNITED STATES) (CHORPHENIRAMINE POLISTIREX, HYDROCODONE POL [Concomitant]
  8. NEUPOGEN [Concomitant]
  9. ARANESP [Concomitant]

REACTIONS (1)
  - CATARACT [None]
